FAERS Safety Report 10224328 (Version 1)
Quarter: 2014Q2

REPORT INFORMATION
  Report Type: Spontaneous
  Country: US (occurrence: US)
  Receive Date: 20140609
  Receipt Date: 20140609
  Transmission Date: 20141212
  Serious: No
  Sender: FDA-Public Use
  Company Number: US-PFIZER INC-2014154353

PATIENT
  Sex: Male

DRUGS (5)
  1. ZOLOFT [Suspect]
     Dosage: 50 MG, 3X/DAY
  2. ZOLOFT [Suspect]
     Dosage: 25 MG, 3X/DAY
  3. ZOLOFT [Suspect]
     Dosage: 25 MG, 1X/DAY
  4. ZOLOFT [Suspect]
     Dosage: 25 MG, 2X/DAY
  5. ZOLOFT [Suspect]
     Dosage: 50 MG, 2X/DAY

REACTIONS (3)
  - Hypersensitivity [Unknown]
  - Rash [Unknown]
  - Diarrhoea [Unknown]
